FAERS Safety Report 6714540-3 (Version None)
Quarter: 2010Q2

REPORT INFORMATION
  Report Type: 
  Country: None (occurrence: None)
  Receive Date: 20100506
  Receipt Date: 20100427
  Transmission Date: 20101027
  Serious: Yes (Other)
  Sender: FDA-Public Use
  Company Number: US-WATSON-2010-05799

PATIENT
  Age: 68 Year
  Sex: Male

DRUGS (1)
  1. HYDRALAZINE (WATSON LABORATORIES) [Suspect]
     Indication: HYPERTENSION
     Dosage: UNK

REACTIONS (3)
  - DYSPHAGIA [None]
  - GASTROINTESTINAL TRACT MUCOSAL PIGMENTATION [None]
  - WEIGHT DECREASED [None]
